FAERS Safety Report 11154390 (Version 2)
Quarter: 2016Q2

REPORT INFORMATION
  Report Type: Spontaneous
  Country: US (occurrence: US)
  Receive Date: 20150602
  Receipt Date: 20160601
  Transmission Date: 20160815
  Serious: No
  Sender: FDA-Public Use
  Company Number: US-NOVEN PHARMACEUTICALS, INC.-14US013008

PATIENT
  Age: 7 Year
  Sex: Male

DRUGS (3)
  1. DAYTRANA [Suspect]
     Active Substance: METHYLPHENIDATE
     Dosage: 30 MG, UNKNOWN
     Route: 062
     Dates: end: 201510
  2. DAYTRANA [Suspect]
     Active Substance: METHYLPHENIDATE
     Indication: ATTENTION DEFICIT/HYPERACTIVITY DISORDER
     Dosage: 10 MG, UNK
     Route: 062
     Dates: start: 201411
  3. ALBUTEROL. [Concomitant]
     Active Substance: ALBUTEROL

REACTIONS (7)
  - Wrong technique in product usage process [Unknown]
  - Drug dose omission [Not Recovered/Not Resolved]
  - Incorrect drug administration duration [Unknown]
  - Drug prescribing error [Unknown]
  - No adverse event [Unknown]
  - Product quality issue [Not Recovered/Not Resolved]
  - Drug administered at inappropriate site [Unknown]

NARRATIVE: CASE EVENT DATE: 201411
